FAERS Safety Report 9641774 (Version 3)
Quarter: 2013Q4

REPORT INFORMATION
  Report Type: Report from Study
  Country: DE (occurrence: DE)
  Receive Date: 20131023
  Receipt Date: 20131108
  Transmission Date: 20140711
  Serious: Yes (Hospitalization)
  Sender: FDA-Public Use
  Company Number: DE-EISAI INC-E7389-04251-SOL-DE

PATIENT
  Sex: Female
  Weight: 65 kg

DRUGS (5)
  1. HALAVEN [Suspect]
     Indication: BREAST CANCER
     Route: 041
     Dates: start: 20130826, end: 20130923
  2. NOVODIGAL [Concomitant]
     Indication: CARDIAC DISORDER
     Route: 048
  3. VOCADO [Concomitant]
     Indication: HYPERTENSION
     Route: 048
  4. MONO EMBOLEX [Concomitant]
     Indication: THROMBOSIS
     Route: 041
     Dates: start: 20130122, end: 20130916
  5. CLEXANE [Concomitant]
     Indication: THROMBOSIS
     Route: 041
     Dates: start: 20130917

REACTIONS (2)
  - Pneumonia [Recovered/Resolved]
  - Pleural effusion [Recovered/Resolved]
